FAERS Safety Report 7415730-7 (Version None)
Quarter: 2011Q2

REPORT INFORMATION
  Report Type: 
  Country: None (occurrence: None)
  Receive Date: 20110414
  Receipt Date: 20101216
  Transmission Date: 20111010
  Serious: Yes (Other)
  Sender: FDA-Public Use
  Company Number: US-BRISTOL-MYERS SQUIBB COMPANY-15444698

PATIENT
  Sex: Female

DRUGS (1)
  1. HYDREA [Suspect]
     Indication: PLATELET COUNT INCREASED

REACTIONS (1)
  - SKIN ULCER [None]
